FAERS Safety Report 25606700 (Version 3)
Quarter: 2025Q3

REPORT INFORMATION
  Report Type: Spontaneous
  Country: EU (occurrence: EU)
  Receive Date: 20250725
  Receipt Date: 20250911
  Transmission Date: 20251020
  Serious: Yes (Hospitalization)
  Sender: PFIZER
  Company Number: EU-ELI_LILLY_AND_COMPANY-ES202507009576

PATIENT
  Age: 52 Year
  Sex: Male
  Weight: 79.1 kg

DRUGS (21)
  1. PEMETREXED [Suspect]
     Active Substance: PEMETREXED
     Indication: Non-small cell lung cancer
     Route: 042
     Dates: start: 20250430
  2. PEMETREXED [Suspect]
     Active Substance: PEMETREXED
     Route: 042
     Dates: start: 20250430, end: 20250620
  3. PEMETREXED [Suspect]
     Active Substance: PEMETREXED
     Dates: start: 20250711, end: 20250711
  4. CARBOPLATIN [Suspect]
     Active Substance: CARBOPLATIN
     Indication: Non-small cell lung cancer
     Route: 042
     Dates: start: 20250430, end: 20250430
  5. CARBOPLATIN [Suspect]
     Active Substance: CARBOPLATIN
     Route: 042
     Dates: start: 20250620, end: 20250620
  6. CARBOPLATIN [Suspect]
     Active Substance: CARBOPLATIN
     Route: 042
     Dates: start: 20250711, end: 20250711
  7. RAMIPRIL [Concomitant]
     Active Substance: RAMIPRIL
     Indication: Hypertension
     Dates: start: 2018
  8. FOLIC ACID [Concomitant]
     Active Substance: FOLIC ACID
     Indication: Prophylaxis
     Dates: start: 20250416
  9. VITAMIN B12 [Concomitant]
     Active Substance: CYANOCOBALAMIN
     Indication: Prophylaxis
     Dates: start: 20250416
  10. METAMIZOLE [Concomitant]
     Active Substance: METAMIZOLE
     Indication: Arthralgia
     Dates: start: 20250512
  11. METAMIZOLE [Concomitant]
     Active Substance: METAMIZOLE
     Indication: Back pain
  12. ACETAMINOPHEN [Concomitant]
     Active Substance: ACETAMINOPHEN
     Indication: Arthralgia
     Dates: start: 20250328
  13. TRAMADOL [Concomitant]
     Active Substance: TRAMADOL
     Indication: Arthralgia
  14. ROSUVASTATIN [Concomitant]
     Active Substance: ROSUVASTATIN
     Indication: Dyslipidaemia
     Dates: start: 2021
  15. EZETIMIBE [Concomitant]
     Active Substance: EZETIMIBE
     Indication: Dyslipidaemia
     Dates: start: 2021
  16. FENTANYL [Concomitant]
     Active Substance: FENTANYL
     Indication: Back pain
     Dates: start: 20250522
  17. PREDNISONE [Concomitant]
     Active Substance: PREDNISONE
     Indication: Back pain
     Dates: start: 20250530
  18. DEXAMETHASONE [Concomitant]
     Active Substance: DEXAMETHASONE
     Indication: Back pain
     Dosage: 2 MG, DAILY
     Route: 048
     Dates: start: 20250522
  19. MORPHINE SULFATE [Concomitant]
     Active Substance: MORPHINE SULFATE
     Indication: Back pain
     Dates: start: 20250520
  20. EBASTINE [Concomitant]
     Active Substance: EBASTINE
     Indication: Rash
     Dates: start: 20250527
  21. CLOBETASOL [Concomitant]
     Active Substance: CLOBETASOL
     Indication: Rash
     Dates: start: 20250527

REACTIONS (2)
  - General physical health deterioration [Recovered/Resolved]
  - Vomiting [Recovered/Resolved]

NARRATIVE: CASE EVENT DATE: 20250627
